FAERS Safety Report 11432285 (Version 1)
Quarter: 2015Q3

REPORT INFORMATION
  Report Type: Spontaneous
  Country: US (occurrence: US)
  Receive Date: 20150828
  Receipt Date: 20150828
  Transmission Date: 20151125
  Serious: No
  Sender: FDA-Public Use
  Company Number: US-SA-2015SA107459

PATIENT
  Age: 68 Year
  Sex: Female
  Weight: 83.91 kg

DRUGS (7)
  1. CERDELGA [Suspect]
     Active Substance: ELIGLUSTAT
     Indication: GAUCHER^S DISEASE
     Route: 065
     Dates: start: 20150420
  2. VITAMIN C [Concomitant]
     Active Substance: ASCORBIC ACID
     Dosage: 1000 MG, 1 DOSE AS DIRECTED
     Dates: start: 20150402
  3. COQ10 [Concomitant]
     Active Substance: UBIDECARENONE
     Dosage: 100 MG; 1 DOSE AS DIRECTED
     Dates: start: 20150402
  4. LEVOTHYROXINE SODIUM. [Concomitant]
     Active Substance: LEVOTHYROXINE SODIUM
     Dates: start: 20150402
  5. MAGNESIUM [Concomitant]
     Active Substance: MAGNESIUM
     Dosage: 250 MG TABLET, 1 DOSE AS DIRECTED
     Dates: start: 20150402
  6. NIACIN. [Concomitant]
     Active Substance: NIACIN
     Dosage: 100 MG TABLET, 1 DOSE AS DIRECTED
     Dates: start: 20150402
  7. VITAMIN D [Concomitant]
     Active Substance: CHOLECALCIFEROL
     Dosage: 10000 UNIT CAPSULE, 1 DOSE AS DIRECTED
     Dates: start: 20150402

REACTIONS (4)
  - Swelling face [Recovered/Resolved]
  - Blood glucose increased [Recovering/Resolving]
  - Glycosylated haemoglobin increased [Recovering/Resolving]
  - Goitre [Unknown]

NARRATIVE: CASE EVENT DATE: 2015
